FAERS Safety Report 9096258 (Version 1)
Quarter: 2013Q1

REPORT INFORMATION
  Report Type: Spontaneous
  Country: US (occurrence: UA)
  Receive Date: 20130207
  Receipt Date: 20130207
  Transmission Date: 20140127
  Serious: Yes (Hospitalization)
  Sender: FDA-Public Use
  Company Number: UA-BANPHARM-20130591

PATIENT
  Age: 51 Year
  Sex: Female
  Weight: 62 kg

DRUGS (3)
  1. VALPROIC ACID [Suspect]
     Indication: EPILEPSY
     Dosage: 300MG,
     Route: 048
     Dates: start: 20111020
  2. PERAMPANEL [Suspect]
     Indication: EPILEPSY
     Dosage: DOUBLE-BLIND (CONVERSION PERIOD)
     Route: 048
     Dates: start: 20091112, end: 20100308
  3. PERAMPANEL [Suspect]
     Indication: EPILEPSY
     Dosage: 10 MG QD
     Route: 048
     Dates: start: 20100309

REACTIONS (6)
  - Craniocerebral injury [Recovered/Resolved with Sequelae]
  - Subarachnoid haemorrhage [Recovered/Resolved with Sequelae]
  - Contusion [Recovered/Resolved with Sequelae]
  - Brain contusion [Recovered/Resolved with Sequelae]
  - Skull fractured base [Recovered/Resolved with Sequelae]
  - Fall [Recovered/Resolved with Sequelae]
